FAERS Safety Report 8433384-8 (Version None)
Quarter: 2012Q2

REPORT INFORMATION
  Report Type: 
  Country: None (occurrence: None)
  Receive Date: 20120323
  Receipt Date: 20111130
  Transmission Date: 20120825
  Serious: Yes (Other)
  Sender: FDA-Public Use
  Company Number: 163-21880-11083245

PATIENT
  Age: 63 Year
  Sex: Male

DRUGS (1)
  1. REVLIMID [Suspect]
     Indication: MYELODYSPLASTIC SYNDROME
     Dosage: 10 MG, DAILY X 21 DAYS OF EVERY 28, PO
     Route: 048
     Dates: start: 20110701, end: 20110831

REACTIONS (11)
  - DYSPNOEA [None]
  - MYALGIA [None]
  - URTICARIA [None]
  - FATIGUE [None]
  - HAEMOGLOBIN DECREASED [None]
  - NO THERAPEUTIC RESPONSE [None]
  - DIARRHOEA [None]
  - ANAEMIA [None]
  - DECREASED APPETITE [None]
  - ASTHENIA [None]
  - RASH [None]
